FAERS Safety Report 8214512-6 (Version None)
Quarter: 2012Q1

REPORT INFORMATION
  Report Type: 
  Country: None (occurrence: None)
  Receive Date: 20120316
  Receipt Date: 20120316
  Transmission Date: 20120608
  Serious: Yes (Other)
  Sender: FDA-Public Use
  Company Number: None

PATIENT
  Age: 69 Year
  Sex: Male
  Weight: 136.07 kg

DRUGS (1)
  1. SIMVASTATIN [Suspect]
     Dosage: ONE TABLET

REACTIONS (10)
  - PROTEIN URINE [None]
  - PARAESTHESIA [None]
  - INTRAOCULAR PRESSURE INCREASED [None]
  - ABDOMINAL PAIN UPPER [None]
  - HYPOAESTHESIA [None]
  - OEDEMA PERIPHERAL [None]
  - ERECTILE DYSFUNCTION [None]
  - DRY EYE [None]
  - BLOOD GLUCOSE INCREASED [None]
  - DRY MOUTH [None]
